FAERS Safety Report 24705925 (Version 2)
Quarter: 2024Q4

REPORT INFORMATION
  Report Type: Spontaneous
  Country: AU (occurrence: AU)
  Receive Date: 20241206
  Receipt Date: 20241210
  Transmission Date: 20250114
  Serious: Yes (Life-Threatening, Hospitalization, Other)
  Sender: PFIZER
  Company Number: AU-MLMSERVICE-20241129-PI270567-00175-2

PATIENT
  Age: 82 Year
  Sex: Female

DRUGS (2)
  1. HEPARIN SODIUM [Suspect]
     Active Substance: HEPARIN SODIUM
     Dosage: BRIDGING UFH INFUSION IN THE PERI-PROCEDURAL PERIOD FOR 48 H
  2. APIXABAN [Concomitant]
     Active Substance: APIXABAN
     Indication: Atrial fibrillation
     Dosage: UNK

REACTIONS (3)
  - Heparin-induced thrombocytopenia [Recovered/Resolved]
  - Ischaemic stroke [Recovering/Resolving]
  - Deep vein thrombosis [Unknown]
